FAERS Safety Report 8805962 (Version 2)
Quarter: 2013Q1

REPORT INFORMATION
  Report Type: Spontaneous
  Country: PT (occurrence: None)
  Receive Date: 20120918
  Receipt Date: 20121025
  Transmission Date: 20140127
  Serious: Yes (Hospitalization)
  Sender: FDA-Public Use
  Company Number: FK201202640

PATIENT
  Age: 28 Year
  Sex: Male

DRUGS (28)
  1. VANCOMICINA LABESFAL [Suspect]
     Indication: ARTHRITIS BACTERIAL
     Route: 042
     Dates: start: 20120703, end: 20120816
  2. MEROPENEM [Suspect]
     Indication: ARTHRITIS BACTERIAL
     Route: 042
     Dates: start: 20120703, end: 20120802
  3. CIPROFLOXACINA (CIPROFLOXACINA) (CIPROFLOXACINA) [Concomitant]
  4. ESTEROFUNDINA A-G BRAUN (CALCIUM CHLORIDE DIHYDRATE, GLUCOSE, MAGNESIUM CHLORIDE HEXAHYDRATE, POTASSIUM CHLORIDE, SODIUM ACETATE TRIHYDRATE, SODIUM CHLORIDE) (CALCIUM CHLORIDE DIHYDRATE, GLUCOSE, MAGNESIUM CHLORIDE HEXAHYDRATE, POTASSIUM CHLORIDE, SODIUM ACETATE TRIHYDRATE, SODIUM CHLORIDE) [Concomitant]
  5. PARACETAMOL KABI (PARACETAMOL) (PARACETAMOL) [Concomitant]
  6. RANITIDINA LABESFAL (RANITIDINE HYDROCHLORIDE, RANITIDINE HYDROCHLORIDE) (RANITIDINE HYDROCHLORIDE, RANITIDINE HYDROCHLORIDE) [Concomitant]
  7. PARACETAMOL LABESFAL (PARACETAMOL, PARACETAMOL) (PARACETAMOL, PARACETAMOL) [Concomitant]
  8. NAPROXENO GENERIS 500 MG COMPRIMIDOS (NAPROXEN, NAPROXEN) (NAPROXEN, NAPROXEN) [Concomitant]
  9. NOLOTIL (METAMIZOLE MAGNESIUM) (METAMIZOLE MAGNESIUM) [Concomitant]
  10. REUMACIDE (INDOMETACIN) (INDOMETACIN) [Concomitant]
  11. GENTAMICINA LABESFAL (GENTAMICIN SULPHATE) (GENTAMICIN SULPHATE) [Concomitant]
  12. SORO GLUCOSADO ISOTONICO (GLUCOSE MONOHYDRATE) (GLUCOSE MONOHYDRATE) [Concomitant]
  13. FERRO-GRADUMET (FERROUS SULFATE) (FERROUS SULFATE) [Concomitant]
  14. TRAMADOL BASI (TRAMADOL HYDROCHLORIDE, TRAMADOL HYDROCHLORIDE) (TRAMADOL HYDROCHLORIDE, TRAMADOL HYDROCHLORIDE) [Concomitant]
  15. NEXIUM (ESOMEPRAZOL MAGNESIUM TRIHYDRATE) (ESOMEPRAZOL MAGNESIUM TRIHYDRATE) [Concomitant]
  16. DAGRAVIT TOTAL 30 [Concomitant]
  17. ALPRAZOLAM PAZOLAM 0,25 MG COMPRIMIDOS (ALPRAZOLAM) (ALPRAZOLAM) [Concomitant]
  18. PRIMPERAN (METOCLOPRAMIDE HYDROCHLORIDE) (METOCLOPRAMIDE HYDROCHLORIDE) [Concomitant]
  19. IBUPROFENO RATIOPHARM 400 MG COMPRIMIDOS REVESTIDOS (IBUPROFEN) (IBUPROFEN) [Concomitant]
  20. LORAZEPAM LABESFAL (LORAZEPAM) (LORAZEPAM) [Concomitant]
  21. ESTEROFUNDINA A BRAUN (CALCIUM CHLORIDE DIHYDRATE, MAGNESIUM CHLORIDE HEXAHYDRATE, POTASSIUM CHLORIDE, SODIUM ACETATE TRIHYDRATE, SODIUM CHLORIDE) (CALCIUM CHLORIDE DIHYDRATE, MAGNESIUM CHLORIDE HEXAHYDRATE, POTASSIUM CHLORIDE, SODIUM ACETATE TRIHYDRATE, SODIUM CHLORIDE) [Concomitant]
  22. QUINOX (CIPROFLOXACIN) (CIPROFLOXACIN) [Concomitant]
  23. EXXIV (ETORICOXIB) (ETORICOXIB) [Concomitant]
  24. DICLOFENAC RATIOPHARM (DICLOFENAC SODIUM) (DICLOFENAC SODIUM) [Concomitant]
  25. ACETILSALICILATO DE LISINA LABESFAL 1800MG PO E SOLVENTE PARA SOLUCAO (LYSINE ACETYLSALICYLATE) (LYSINE ACETYLSALICYLATE) [Concomitant]
  26. LOVENOX (ENOXAPARIN SODIUM) (ENOXAPARIN SODIUM) [Concomitant]
  27. BLOCULCER (RANITIDINE HYDROCHLORIDE) (RANITIDINE HYDROCHLORIDE) [Concomitant]
  28. CIPROFLOXACINA LABESFAL (CIPROFLOXACIN HYDROCHLORIDE MONOHYDRATE) (CIPROFLOXACIN HYDROCHLORIDE MONOHYDRATE) [Concomitant]

REACTIONS (2)
  - Leukopenia [None]
  - Neutropenia [None]
